FAERS Safety Report 11948055 (Version 4)
Quarter: 2016Q1

REPORT INFORMATION
  Report Type: Spontaneous
  Country: US (occurrence: US)
  Receive Date: 20160125
  Receipt Date: 20160216
  Transmission Date: 20160526
  Serious: Yes (Death, Hospitalization)
  Sender: FDA-Public Use
  Company Number: US-BAYER-2016-007957

PATIENT
  Age: 83 Year
  Sex: Female
  Weight: 54.42 kg

DRUGS (2)
  1. BAYER LOW DOSE [Suspect]
     Active Substance: ASPIRIN
     Dosage: 81 MG, QD
     Route: 048
  2. ONE A DAY ESSENTIAL [Suspect]
     Active Substance: VITAMINS
     Dosage: 1 DF, QD

REACTIONS (2)
  - Dementia Alzheimer^s type [Fatal]
  - Therapeutic response unexpected [None]
